FAERS Safety Report 4477467-6 (Version None)
Quarter: 2004Q4

REPORT INFORMATION
  Report Type: 
  Country: None (occurrence: None)
  Receive Date: 20041015
  Receipt Date: 20041008
  Transmission Date: 20050328
  Serious: Yes (Other)
  Sender: FDA-Public Use
  Company Number: 002931

PATIENT
  Age: 62 Year
  Sex: Female

DRUGS (4)
  1. MEDROXYPROGESTERONE ACETATE [Suspect]
     Dates: start: 19930101, end: 20030101
  2. PREMARIN [Suspect]
     Dates: start: 19930101, end: 20030101
  3. PROVERA [Suspect]
     Dates: start: 19930101, end: 20030101
  4. CYCRIN [Suspect]
     Dates: start: 19930101, end: 20030101

REACTIONS (1)
  - BREAST CANCER FEMALE [None]
